FAERS Safety Report 10241674 (Version 2)
Quarter: 2014Q3

REPORT INFORMATION
  Report Type: Spontaneous
  Country: US (occurrence: None)
  Receive Date: 20140613
  Receipt Date: 20140711
  Transmission Date: 20150326
  Serious: Yes (Hospitalization)
  Sender: FDA-Public Use
  Company Number: UNT-2014-001669

PATIENT
  Age: 78 Year
  Sex: Female
  Weight: 86.2 kg

DRUGS (3)
  1. COUMADIN [Concomitant]
     Active Substance: WARFARIN SODIUM
  2. REVATIO (SILDENAFIL CITRATE) [Concomitant]
  3. REMODULIN [Suspect]
     Active Substance: TREPROSTINIL
     Indication: COR PULMONALE CHRONIC
     Dosage: 0.060 UG/KG/MIN, CONTINUING
     Route: 058
     Dates: start: 20060707

REACTIONS (1)
  - Knee operation [None]

NARRATIVE: CASE EVENT DATE: 201405
